FAERS Safety Report 4355762-9 (Version None)
Quarter: 2004Q2

REPORT INFORMATION
  Report Type: 
  Country: None (occurrence: None)
  Receive Date: 20040505
  Receipt Date: 20040421
  Transmission Date: 20050107
  Serious: Yes (Death, Hospitalization)
  Sender: FDA-Public Use
  Company Number: 206004

PATIENT
  Age: 77 Year
  Sex: Male

DRUGS (5)
  1. RITUXIMAB (RITUXIMAB) CONC FOR SOLUTION FOR INFUSION [Suspect]
     Indication: NON-HODGKIN'S LYMPHOMA
     Dosage: 560 MG, INTRAVENOUS
     Route: 042
     Dates: start: 20020822, end: 20020822
  2. VINCRISTINE [Suspect]
     Dosage: 0.4 MG, INTRAVENOUS
     Route: 042
     Dates: start: 20020821, end: 20020821
  3. DOXORUBICIN HYDROCHLORIDE [Suspect]
     Dosage: 14 MG, INTRAVENOUS
     Route: 042
     Dates: start: 20020821, end: 20020821
  4. CYTARABINE [Suspect]
     Dosage: 100 MG, INTRAVENOUS
     Route: 042
     Dates: start: 20020821, end: 20020821
  5. DEXAMETHASONE [Suspect]
     Dosage: 40 MG, INTRAVENOUS
     Route: 042
     Dates: start: 20020821, end: 20020821

REACTIONS (15)
  - BLOOD ALKALINE PHOSPHATASE INCREASED [None]
  - BLOOD BILIRUBIN INCREASED [None]
  - BLOOD LACTATE DEHYDROGENASE INCREASED [None]
  - BLOOD UREA INCREASED [None]
  - C-REACTIVE PROTEIN INCREASED [None]
  - DISEASE PROGRESSION [None]
  - DISEASE RECURRENCE [None]
  - HEART RATE INCREASED [None]
  - INFECTION [None]
  - JAUNDICE [None]
  - LYMPHADENOPATHY [None]
  - LYMPHOMA [None]
  - NEUTROPENIA [None]
  - PANCYTOPENIA [None]
  - PLEURAL EFFUSION [None]
